FAERS Safety Report 21068526 (Version 1)
Quarter: 2022Q3

REPORT INFORMATION
  Report Type: Spontaneous
  Country: JP (occurrence: JP)
  Receive Date: 20220712
  Receipt Date: 20220712
  Transmission Date: 20221027
  Serious: Yes (Other)
  Sender: FDA-Public Use
  Company Number: JP-MYLANLABS-2022M1077340

PATIENT
  Age: 36 Year
  Sex: Female

DRUGS (6)
  1. MAGNESIUM OXIDE [Suspect]
     Active Substance: MAGNESIUM OXIDE
     Indication: Constipation
     Dosage: 750 MILLIGRAM, QD
     Route: 065
  2. NALDEMEDINE [Interacting]
     Active Substance: NALDEMEDINE
     Indication: Constipation
     Dosage: 0.2 MILLIGRAM
     Route: 048
  3. OXYCODONE HYDROCHLORIDE [Interacting]
     Active Substance: OXYCODONE HYDROCHLORIDE
     Indication: Cancer pain
     Dosage: 10 MILLIGRAM, QD
     Route: 042
  4. OXYCODONE HYDROCHLORIDE [Interacting]
     Active Substance: OXYCODONE HYDROCHLORIDE
     Dosage: 80 MILLIGRAM, QD
     Route: 042
  5. IRINOTECAN [Concomitant]
     Active Substance: IRINOTECAN
     Indication: Cervix carcinoma recurrent
     Route: 065
  6. NEDAPLATIN [Concomitant]
     Active Substance: NEDAPLATIN
     Indication: Cervix carcinoma recurrent
     Route: 065

REACTIONS (1)
  - Drug ineffective [Unknown]
